FAERS Safety Report 8422013-5 (Version None)
Quarter: 2012Q2

REPORT INFORMATION
  Report Type: 
  Country: None (occurrence: None)
  Receive Date: 20120323
  Receipt Date: 20110209
  Transmission Date: 20120825
  Serious: Yes (Hospitalization)
  Sender: FDA-Public Use
  Company Number: 163-21880-11021527

PATIENT
  Sex: Female

DRUGS (4)
  1. FLUOXETINE [Concomitant]
  2. AVAPRO (IRBESARTN) [Concomitant]
  3. REVLIMID [Suspect]
     Indication: MULTIPLE MYELOMA
     Dosage: 25 MG, DAILY FOR 21 DAYS, PO
     Route: 048
     Dates: start: 20090203
  4. METFFORMIN HYDROCHLORIDE [Concomitant]

REACTIONS (1)
  - PNEUMONIA [None]
